FAERS Safety Report 6230360-0 (Version None)
Quarter: 2009Q2

REPORT INFORMATION
  Report Type: 
  Country: None (occurrence: None)
  Receive Date: 20090611
  Receipt Date: 20090529
  Transmission Date: 20091009
  Serious: Yes (Hospitalization, Other)
  Sender: FDA-Public Use
  Company Number: PAR_03026_2009

PATIENT
  Age: 6 Year
  Sex: Male

DRUGS (1)
  1. IBUPROFEN [Suspect]
     Indication: PYREXIA
     Dosage: 100 MG 1X/6 HOURS, 20 MG/KG/DAY, ORAL
     Route: 048

REACTIONS (6)
  - COAGULOPATHY [None]
  - DEHYDRATION [None]
  - HAEMORRHAGE [None]
  - PLEURAL EFFUSION [None]
  - RENAL IMPAIRMENT [None]
  - RENAL TUBULAR NECROSIS [None]
